FAERS Safety Report 14288318 (Version 4)
Quarter: 2018Q3

REPORT INFORMATION
  Report Type: Report from Study
  Country: FR (occurrence: FR)
  Receive Date: 20171215
  Receipt Date: 20180921
  Transmission Date: 20181010
  Serious: Yes (Hospitalization)
  Sender: FDA-Public Use
  Company Number: FR-ROCHE-2026384

PATIENT
  Age: 81 Year
  Sex: Male
  Weight: 80 kg

DRUGS (21)
  1. VENETOCLAX. [Suspect]
     Active Substance: VENETOCLAX
     Indication: CHRONIC LYMPHOCYTIC LEUKAEMIA
     Dosage: 20 MG DAILY DURING CYCLE 1, DAY 22?28; 50 MG DAILY DURING CYCLE 2, DAY 1?7; 100 MG DAILY DURING CYCL
     Route: 048
     Dates: start: 20160518
  2. FUROSEMIDE. [Concomitant]
     Active Substance: FUROSEMIDE
     Indication: HYPERTENSION
  3. ROVAMYCINE [Concomitant]
     Active Substance: SPIRAMYCIN
     Route: 048
     Dates: start: 20180220, end: 20180227
  4. AUGMENTIN [Concomitant]
     Active Substance: AMOXICILLIN\CLAVULANATE POTASSIUM
     Indication: NASAL POLYPS
     Route: 048
     Dates: start: 201708, end: 201708
  5. TEMERIT [Concomitant]
     Active Substance: NEBIVOLOL
     Indication: HYPERTENSION
  6. ALDACTONE [Concomitant]
     Active Substance: SPIRONOLACTONE
     Indication: CARDIAC FAILURE
     Route: 048
  7. ALDACTONE [Concomitant]
     Active Substance: SPIRONOLACTONE
     Indication: HYPERTENSION
  8. ROVAMYCINE [Concomitant]
     Active Substance: SPIRAMYCIN
     Indication: LUNG DISORDER
     Route: 042
     Dates: start: 20180212, end: 20180219
  9. KARDEGIC [Concomitant]
     Active Substance: ASPIRIN DL-LYSINE
     Indication: CARDIAC FAILURE
     Route: 048
     Dates: start: 20180612
  10. FUROSEMIDE. [Concomitant]
     Active Substance: FUROSEMIDE
     Indication: CARDIAC FAILURE
     Route: 048
  11. VEINAMITOL [Concomitant]
     Active Substance: TROXERUTIN
     Indication: GLAUCOMA
     Route: 065
     Dates: start: 201803, end: 201806
  12. CYAMEMAZINE [Concomitant]
     Active Substance: CYAMEMAZINE
     Indication: INSOMNIA
     Dosage: DOSE: 7 GTT (DROP)
     Route: 048
     Dates: start: 20170920
  13. OXAZEPAM. [Concomitant]
     Active Substance: OXAZEPAM
     Indication: INSOMNIA
     Route: 048
     Dates: start: 20170920
  14. CILOXADEX [Concomitant]
     Active Substance: CIPROFLOXACIN HYDROCHLORIDE\DEXAMETHASONE
     Indication: OTORRHOEA
     Route: 050
     Dates: start: 20180515, end: 20180529
  15. MONOPROST [Concomitant]
     Active Substance: LATANOPROST
     Indication: GLAUCOMA
     Route: 047
     Dates: start: 201806
  16. OBINUTUZUMAB. [Suspect]
     Active Substance: OBINUTUZUMAB
     Indication: CHRONIC LYMPHOCYTIC LEUKAEMIA
     Dosage: 1000 MG AT CYCLE 1, DAY 8 AND DAY 15; 1000 MG AT DAY 1 FOR ALL SUBSEQUENT CYCLES UNTIL THE END OF CY
     Route: 042
     Dates: start: 20160425
  17. TEMERIT [Concomitant]
     Active Substance: NEBIVOLOL
     Indication: CARDIAC FAILURE
     Route: 048
  18. GANFORT [Concomitant]
     Active Substance: BIMATOPROST\TIMOLOL
     Indication: GLAUCOMA
     Route: 047
     Dates: start: 201803, end: 201806
  19. AUGMENTIN [Concomitant]
     Active Substance: AMOXICILLIN\CLAVULANATE POTASSIUM
     Indication: LUNG DISORDER
     Route: 042
     Dates: start: 20180212, end: 20180219
  20. AUGMENTIN [Concomitant]
     Active Substance: AMOXICILLIN\CLAVULANATE POTASSIUM
     Dosage: (1G/125MG)
     Route: 048
     Dates: start: 20180220, end: 20180227
  21. AZOPT [Concomitant]
     Active Substance: BRINZOLAMIDE
     Indication: GLAUCOMA
     Route: 047
     Dates: start: 201803, end: 201806

REACTIONS (1)
  - Sinusitis aspergillus [Not Recovered/Not Resolved]

NARRATIVE: CASE EVENT DATE: 20171103
